FAERS Safety Report 20382435 (Version 1)
Quarter: 2022Q1

REPORT INFORMATION
  Report Type: Spontaneous
  Country: US (occurrence: None)
  Receive Date: 20220126
  Receipt Date: 20220126
  Transmission Date: 20220424
  Serious: No
  Sender: FDA-Public Use
  Company Number: None

PATIENT
  Age: 50 Year
  Sex: Female
  Weight: 57.15 kg

DRUGS (3)
  1. DELSYM COUGH [Suspect]
     Active Substance: DEXTROMETHORPHAN HYDROBROMIDE
     Indication: Cough
     Dosage: OTHER QUANTITY : 1 DOSING CUP;?FREQUENCY : EVERY 12 HOURS;?
     Route: 048
     Dates: start: 20220113, end: 20220114
  2. DELSYM COUGH [Suspect]
     Active Substance: DEXTROMETHORPHAN HYDROBROMIDE
     Indication: Nasopharyngitis
  3. VITAMINS [Concomitant]
     Active Substance: VITAMINS

REACTIONS (4)
  - Nausea [None]
  - Dizziness [None]
  - Decreased appetite [None]
  - Adverse drug reaction [None]

NARRATIVE: CASE EVENT DATE: 20220114
